FAERS Safety Report 12573352 (Version 1)
Quarter: 2016Q3

REPORT INFORMATION
  Report Type: Spontaneous
  Country: RU (occurrence: RU)
  Receive Date: 20160720
  Receipt Date: 20160720
  Transmission Date: 20161109
  Serious: Yes (Other)
  Sender: FDA-Public Use
  Company Number: RU-TOLMAR, INC.-2016RU006921

PATIENT
  Age: 71 Year
  Sex: Male

DRUGS (2)
  1. ELIGARD [Suspect]
     Active Substance: LEUPROLIDE ACETATE
     Indication: HORMONE-DEPENDENT PROSTATE CANCER
     Dosage: 45 MG, UNK
     Route: 065
     Dates: start: 20160419
  2. ZOLADEX [Concomitant]
     Active Substance: GOSERELIN ACETATE
     Dosage: UNK
     Route: 065
     Dates: start: 201604

REACTIONS (9)
  - Angina pectoris [Unknown]
  - Blood pressure inadequately controlled [Unknown]
  - Visual acuity reduced [Unknown]
  - Micturition disorder [Unknown]
  - Hypoglycaemia [Unknown]
  - Glaucoma [Unknown]
  - Flushing [Unknown]
  - Wrong technique in product usage process [Unknown]
  - Syringe issue [Unknown]

NARRATIVE: CASE EVENT DATE: 20160419
